FAERS Safety Report 5378788-5 (Version None)
Quarter: 2007Q3

REPORT INFORMATION
  Report Type: 
  Country: None (occurrence: None)
  Receive Date: 20070705
  Receipt Date: 20070625
  Transmission Date: 20080115
  Serious: Yes (Death)
  Sender: FDA-Public Use
  Company Number: IT-ELI_LILLY_AND_COMPANY-IT200706006260

PATIENT
  Age: 68 Year
  Sex: Male

DRUGS (5)
  1. GEMZAR [Suspect]
     Indication: LUNG NEOPLASM MALIGNANT
     Dosage: 1900 MG, OTHER
     Route: 042
     Dates: start: 20070612, end: 20070612
  2. ZOMETA [Concomitant]
     Dosage: 4 MG, OTHER
     Dates: start: 20070612, end: 20070612
  3. BICALUTAMIDE [Concomitant]
     Dosage: 150 MG, UNK
  4. MORPHINE [Concomitant]
     Dosage: 20 MG, UNK
  5. DEXAMETASON [Concomitant]
     Dosage: 8 MG, UNK

REACTIONS (2)
  - FEBRILE NEUTROPENIA [None]
  - HEPATITIS ACUTE [None]
